FAERS Safety Report 19839989 (Version 1)
Quarter: 2021Q3

REPORT INFORMATION
  Report Type: Spontaneous
  Country: US (occurrence: US)
  Receive Date: 20210916
  Receipt Date: 20210916
  Transmission Date: 20211014
  Serious: Yes (Disabling)
  Sender: FDA-Public Use
  Company Number: None

PATIENT
  Age: 11 Year
  Sex: Female
  Weight: 33.75 kg

DRUGS (1)
  1. HYDROCORTISONE CREAM USP 2.5% [Suspect]
     Active Substance: HYDROCORTISONE
     Indication: ECZEMA
     Route: 061
     Dates: start: 20180101, end: 20190427

REACTIONS (4)
  - Wound [None]
  - Insomnia [None]
  - Steroid withdrawal syndrome [None]
  - Condition aggravated [None]

NARRATIVE: CASE EVENT DATE: 20190427
